FAERS Safety Report 24263919 (Version 1)
Quarter: 2024Q3

REPORT INFORMATION
  Report Type: Report from Study
  Country: CN (occurrence: CN)
  Receive Date: 20240829
  Receipt Date: 20240829
  Transmission Date: 20241017
  Serious: Yes (Life-Threatening, Other)
  Sender: ASTELLAS
  Company Number: CN-GILEAD-2024-0684333

PATIENT
  Age: 5 Year
  Weight: 17 kg

DRUGS (2)
  1. AMPHOTERICIN B [Suspect]
     Active Substance: AMPHOTERICIN B
     Indication: Visceral leishmaniasis
     Dosage: 0.1 MG/KG
     Route: 042
  2. AMPHOTERICIN B [Suspect]
     Active Substance: AMPHOTERICIN B
     Dosage: 0.25^-0.5 MG/KG EVERY DAY FROM THE 2ND DAY TO THE MAINTENANCE DOSE OF 40 MG/D, WITH A TOTAL DOSE OF
     Route: 042

REACTIONS (3)
  - Hypokalaemia [Recovered/Resolved]
  - Hypocalcaemia [Recovered/Resolved]
  - Off label use [Recovered/Resolved]
